FAERS Safety Report 8576722-8 (Version None)
Quarter: 2012Q3

REPORT INFORMATION
  Report Type: 
  Country: None (occurrence: None)
  Receive Date: 20120807
  Receipt Date: 20120801
  Transmission Date: 20120928
  Serious: Yes (Other)
  Sender: FDA-Public Use
  Company Number: FR-GLAXOSMITHKLINE-B0819904A

PATIENT
  Age: 37 Year
  Sex: Female

DRUGS (3)
  1. PLAVIX [Concomitant]
     Indication: CEREBROVASCULAR ACCIDENT
     Route: 065
  2. LAMICTAL [Suspect]
     Indication: PRODUCT USED FOR UNKNOWN INDICATION
     Route: 048
     Dates: start: 20120101
  3. ATORVASTATIN [Concomitant]
     Indication: CEREBROVASCULAR ACCIDENT
     Route: 065

REACTIONS (4)
  - DIARRHOEA [None]
  - VAGINAL HAEMORRHAGE [None]
  - FATIGUE [None]
  - LYMPHADENOPATHY [None]
